FAERS Safety Report 8848907 (Version 1)
Quarter: 2012Q4

REPORT INFORMATION
  Report Type: Spontaneous
  Country: US (occurrence: None)
  Receive Date: 20121017
  Receipt Date: 20121017
  Transmission Date: 20130627
  Serious: Yes (Life-Threatening)
  Sender: FDA-Public Use
  Company Number: None

PATIENT
  Age: 55 Year
  Sex: Female
  Weight: 38.56 kg

DRUGS (1)
  1. IRBESARTAN [Suspect]
     Indication: BLOOD PRESSURE HIGH
     Route: 048
     Dates: start: 20120701, end: 20121015

REACTIONS (2)
  - Asthma [None]
  - Product substitution issue [None]
